FAERS Safety Report 24037298 (Version 1)
Quarter: 2024Q3

REPORT INFORMATION
  Report Type: Spontaneous
  Country: US (occurrence: US)
  Receive Date: 20240702
  Receipt Date: 20240702
  Transmission Date: 20241017
  Serious: No
  Sender: ARCUTIS
  Company Number: US-ARCUTIS BIOTHERAPEUTICS INC-2024AER000086

PATIENT
  Age: 50 Year
  Sex: Male

DRUGS (5)
  1. ZORYVE [Suspect]
     Active Substance: ROFLUMILAST
     Indication: Seborrhoeic dermatitis
     Dosage: UNK
     Route: 061
     Dates: start: 202402
  2. VANICREAM [Concomitant]
     Active Substance: TITANIUM DIOXIDE\ZINC OXIDE
     Indication: Product used for unknown indication
     Route: 065
  3. XYLITOL [Concomitant]
     Active Substance: XYLITOL
     Indication: Seborrhoeic dermatitis
     Dosage: UNK
  4. TEA TREE OIL [Concomitant]
     Active Substance: TEA TREE OIL
     Indication: Seborrhoeic dermatitis
  5. SQUALANE [Concomitant]
     Active Substance: SQUALANE
     Indication: Seborrhoeic dermatitis

REACTIONS (4)
  - Application site paraesthesia [Unknown]
  - Headache [Unknown]
  - Drug ineffective for unapproved indication [Unknown]
  - Product residue present [Unknown]

NARRATIVE: CASE EVENT DATE: 20240101
